FAERS Safety Report 5300412-8 (Version None)
Quarter: 2007Q2

REPORT INFORMATION
  Report Type: 
  Country: None (occurrence: None)
  Receive Date: 20070413
  Receipt Date: 20070413
  Transmission Date: 20071010
  Serious: Yes (Life-Threatening, Hospitalization)
  Sender: FDA-Public Use
  Company Number: None

PATIENT
  Sex: Female
  Weight: 68.5 kg

DRUGS (2)
  1. OMNIPAQUE 140 [Suspect]
     Indication: COMPUTERISED TOMOGRAM
     Dosage: 90 CC IV X 1
     Route: 042
     Dates: start: 20070327
  2. OMNIPAQUE 140 [Suspect]
     Indication: LYMPHADENOPATHY
     Dosage: 90 CC IV X 1
     Route: 042
     Dates: start: 20070327

REACTIONS (1)
  - ANAPHYLACTIC REACTION [None]
